FAERS Safety Report 6348719-X (Version None)
Quarter: 2009Q3

REPORT INFORMATION
  Report Type: 
  Country: None (occurrence: None)
  Receive Date: 20090908
  Receipt Date: 20090826
  Transmission Date: 20100115
  Serious: Yes (Other)
  Sender: FDA-Public Use
  Company Number: MOZO-1000184

PATIENT
  Age: 62 Year
  Sex: Male
  Weight: 99.9 kg

DRUGS (20)
  1. MOZOBIL [Suspect]
     Indication: HAEMATOPOIETIC STEM CELL MOBILISATION
     Dosage: 24 MG, QD,
     Dates: start: 20090119, end: 20090120
  2. MOZOBIL [Suspect]
     Indication: NON-HODGKIN'S LYMPHOMA
     Dosage: 24 MG, QD,
     Dates: start: 20090119, end: 20090120
  3. GRANULOCYTE COLONY STIMULATING FACTOR (GRANULOCYTE COLONY STIMULATING [Concomitant]
  4. PROTONIX [Concomitant]
  5. COMPAZINE (PROCHLORPERAZINE MALEATE) [Concomitant]
  6. ATIVAN [Concomitant]
  7. OXYCODONE HCL [Concomitant]
  8. AMBIEN [Concomitant]
  9. MAGNESIUM (MAGNESIUM) [Concomitant]
  10. POTASSIUM (POTASSIUM) [Concomitant]
  11. ENALAPRIL MALEATE AND HYDROCHLOROTHIAZIDE [Concomitant]
  12. BUSULFAN (BUSULFAN) [Concomitant]
  13. CYTOXAN [Concomitant]
  14. PHENYTOIN [Concomitant]
  15. ENOXAPARIN SODIUM [Concomitant]
  16. CETIRIZINE HCL [Concomitant]
  17. APREPITANT (APREPITANT) [Concomitant]
  18. DEXAMETHASONE TAB [Concomitant]
  19. BENADRYL [Concomitant]
  20. GRANULOCYTE MACROPHAGE COLONY STIMULATING FACTOR (GRANULOCYTE MACROPHA [Concomitant]

REACTIONS (1)
  - DELAYED ENGRAFTMENT [None]
